FAERS Safety Report 23131990 (Version 1)
Quarter: 2023Q4

REPORT INFORMATION
  Report Type: Spontaneous
  Country: SI (occurrence: SI)
  Receive Date: 20231101
  Receipt Date: 20231101
  Transmission Date: 20240110
  Serious: Yes (Other)
  Sender: FDA-Public Use
  Company Number: SI-BAYER-2023A151867

PATIENT
  Age: 55 Year
  Sex: Female

DRUGS (2)
  1. RIVAROXABAN [Suspect]
     Active Substance: RIVAROXABAN
     Indication: Thrombosis prophylaxis
     Dosage: 15 MG/12 H FOR 21 DAYS
     Route: 065
  2. RIVAROXABAN [Suspect]
     Active Substance: RIVAROXABAN
     Dosage: 20 MG UNK
     Route: 065

REACTIONS (12)
  - Cerebral ischaemia [Unknown]
  - Aortic valve disease [Unknown]
  - Thrombosis [Unknown]
  - Thrombosis [Unknown]
  - Paraesthesia [Unknown]
  - Lung consolidation [Unknown]
  - Lymphangiosis carcinomatosa [Unknown]
  - Malignant neoplasm of pleura [Unknown]
  - Pleural effusion [Unknown]
  - Lung adenocarcinoma [Unknown]
  - Limb discomfort [Unknown]
  - Asthenia [Unknown]
